FAERS Safety Report 4500295-X (Version None)
Quarter: 2004Q4

REPORT INFORMATION
  Report Type: 
  Country: None (occurrence: None)
  Receive Date: 20041109
  Receipt Date: 20041022
  Transmission Date: 20050328
  Serious: Yes (Other)
  Sender: FDA-Public Use
  Company Number: DSA_25244_2004

PATIENT
  Age: 56 Year
  Sex: Female
  Weight: 87.0906 kg

DRUGS (1)
  1. CARDIZEM LA [Suspect]
     Indication: HYPERTENSION
     Dosage: 240 MG Q DAY PO
     Route: 048
     Dates: start: 20041011

REACTIONS (1)
  - MENSTRUAL DISORDER [None]
